FAERS Safety Report 5953088-0 (Version None)
Quarter: 2008Q4

REPORT INFORMATION
  Report Type: 
  Country: None (occurrence: None)
  Receive Date: 20081114
  Receipt Date: 20080317
  Transmission Date: 20090506
  Serious: No
  Sender: FDA-Public Use
  Company Number: US-BRISTOL-MYERS SQUIBB COMPANY-14117550

PATIENT
  Age: 94 Year
  Sex: Male
  Weight: 66 kg

DRUGS (4)
  1. GLUCOPHAGE XR [Suspect]
     Indication: DIABETES MELLITUS
  2. LIPITOR [Concomitant]
  3. ASPIRIN [Concomitant]
  4. PROSCAR [Concomitant]

REACTIONS (1)
  - WEIGHT DECREASED [None]
